FAERS Safety Report 8393088 (Version 3)
Quarter: 2014Q1

REPORT INFORMATION
  Report Type: Report from Study
  Country: DE (occurrence: DE)
  Receive Date: 20120207
  Receipt Date: 20140221
  Transmission Date: 20141002
  Serious: Yes (Hospitalization)
  Sender: FDA-Public Use
  Company Number: DE-UCBSA-033663

PATIENT
  Age: 71 Year
  Sex: Female

DRUGS (24)
  1. NEUPRO [Suspect]
     Indication: PARKINSON^S DISEASE
     Route: 062
     Dates: start: 20101028, end: 20110512
  2. NEUPRO [Suspect]
     Indication: PARKINSON^S DISEASE
     Route: 062
     Dates: start: 20101022, end: 20101027
  3. NEUPRO [Suspect]
     Indication: PARKINSON^S DISEASE
     Route: 062
     Dates: start: 201010, end: 201010
  4. NEUPRO [Suspect]
     Indication: PARKINSON^S DISEASE
     Route: 062
     Dates: start: 200910, end: 201004
  5. NEUPRO [Suspect]
     Indication: PARKINSON^S DISEASE
     Route: 062
     Dates: start: 200910, end: 200910
  6. NEUPRO [Suspect]
     Indication: PARKINSON^S DISEASE
     Route: 062
     Dates: start: 200907, end: 200910
  7. AZILECT [Concomitant]
     Indication: PARKINSON^S DISEASE
     Dates: start: 20110512
  8. MADOPAR [Concomitant]
     Indication: PARKINSON^S DISEASE
     Dates: start: 20110512, end: 20111208
  9. MADOPAR [Concomitant]
     Indication: PARKINSON^S DISEASE
     Dates: start: 20111209
  10. MADOPAR LT [Concomitant]
     Indication: PARKINSON^S DISEASE
     Dates: start: 20110512
  11. AMANTADINE [Concomitant]
     Indication: PARKINSON^S DISEASE
     Dates: end: 200910
  12. AMANTADINE [Concomitant]
     Indication: PARKINSON^S DISEASE
     Dates: start: 20101021
  13. AMANTADINE [Concomitant]
     Indication: PARKINSON^S DISEASE
     Dosage: DOSE DECREASED
  14. METOPROLOL [Concomitant]
     Indication: HYPERTENSION
     Dates: end: 20110917
  15. ENALAPRIL [Concomitant]
     Indication: HYPERTENSION
  16. SIMVASTATIN [Concomitant]
     Indication: BLOOD CHOLESTEROL DECREASED
  17. SIMVASTATIN [Concomitant]
     Indication: BLOOD CHOLESTEROL INCREASED
  18. SIMVASTATIN [Concomitant]
     Indication: BLOOD CHOLESTEROL DECREASED
     Dates: start: 20110512
  19. SIMVASTATIN [Concomitant]
     Indication: BLOOD CHOLESTEROL INCREASED
     Dates: start: 20110512
  20. L-THYROXINE [Concomitant]
     Indication: SURGERY
     Dosage: 75 OTHER UG
     Dates: start: 201008
  21. ENALAPRIL PLUS [Concomitant]
     Indication: HYPERTENSION
     Dosage: DAILY DOSE:10/25 MG
     Dates: start: 20100415, end: 20110401
  22. ENALAPRIL PLUS [Concomitant]
     Indication: HYPERTENSION
     Dosage: 10/25MG
     Dates: start: 20110512
  23. TORASEMID [Concomitant]
     Indication: HYPERTENSION
     Dates: start: 20110512, end: 20110917
  24. SEROQUEL [Concomitant]
     Indication: HALLUCINATION
     Dates: start: 20110512, end: 20110917

REACTIONS (1)
  - Gait disturbance [Recovered/Resolved]
